FAERS Safety Report 12385136 (Version 1)
Quarter: 2016Q2

REPORT INFORMATION
  Report Type: Spontaneous
  Country: US (occurrence: US)
  Receive Date: 20160519
  Receipt Date: 20160519
  Transmission Date: 20160815
  Serious: Yes (Other)
  Sender: FDA-Public Use
  Company Number: US-BAYER-2016-092425

PATIENT
  Age: 31 Year
  Sex: Female
  Weight: 77.98 kg

DRUGS (2)
  1. MIRENA [Suspect]
     Active Substance: LEVONORGESTREL
     Indication: CONTRACEPTION
     Dosage: 20 MCG/24HR, CONT
     Route: 015
     Dates: start: 20081129
  2. ZYRTEC [Concomitant]
     Active Substance: CETIRIZINE HYDROCHLORIDE
     Indication: MULTIPLE ALLERGIES
     Dosage: UNK

REACTIONS (7)
  - Dyspareunia [None]
  - Menorrhagia [None]
  - Menstruation irregular [None]
  - Depression [None]
  - Ovarian cyst [None]
  - Device use error [None]
  - Uterine perforation [None]

NARRATIVE: CASE EVENT DATE: 2014
